FAERS Safety Report 7727679-0 (Version None)
Quarter: 2011Q3

REPORT INFORMATION
  Report Type: 
  Country: None (occurrence: None)
  Receive Date: 20110902
  Receipt Date: 20110822
  Transmission Date: 20111222
  Serious: Yes (Death)
  Sender: FDA-Public Use
  Company Number: FR-GENENTECH-323586

PATIENT
  Age: 80 Year
  Sex: Male

DRUGS (8)
  1. MYCOPHENOLATE MOFETIL [Suspect]
     Indication: POLYARTERITIS NODOSA
     Dosage: 1 DF, BID
     Route: 048
     Dates: start: 20060101, end: 20110809
  2. ACTONEL [Concomitant]
     Dosage: UNK
  3. MABTHERA [Suspect]
     Indication: POLYARTERITIS NODOSA
     Dosage: 375 MG/M2, UNK
     Route: 042
     Dates: start: 20050701, end: 20110805
  4. PREDNISONE [Suspect]
     Indication: PRODUCT USED FOR UNKNOWN INDICATION
     Dosage: 1 DF, QAM
     Route: 048
     Dates: start: 20090501, end: 20110809
  5. NEBIVOLOL HCL [Concomitant]
     Indication: PRODUCT USED FOR UNKNOWN INDICATION
     Dosage: UNK
  6. LASILIX 40 [Concomitant]
     Indication: PRODUCT USED FOR UNKNOWN INDICATION
     Dosage: UNK
  7. LYRICA [Concomitant]
     Indication: PRODUCT USED FOR UNKNOWN INDICATION
     Dosage: UNK
  8. STABLON [Concomitant]
     Indication: PRODUCT USED FOR UNKNOWN INDICATION
     Dosage: UNK

REACTIONS (2)
  - MYELODYSPLASTIC SYNDROME [None]
  - LUNG INFECTION [None]
